FAERS Safety Report 6171976-X (Version None)
Quarter: 2009Q2

REPORT INFORMATION
  Report Type: 
  Country: None (occurrence: None)
  Receive Date: 20090429
  Receipt Date: 20090427
  Transmission Date: 20091009
  Serious: Yes (Hospitalization)
  Sender: FDA-Public Use
  Company Number: PHHO2006US11557

PATIENT
  Sex: Male
  Weight: 93.6 kg

DRUGS (4)
  1. TEGRETOL [Suspect]
  2. CIBADREX T29368+ [Suspect]
     Indication: HYPERTENSION
     Dosage: LEVEL 1
     Route: 048
     Dates: start: 20040804
  3. CIBADREX T29368+ [Suspect]
     Dosage: LEVEL 2
     Route: 048
  4. BENZODIAZEPINES [Interacting]

REACTIONS (5)
  - CONFUSIONAL STATE [None]
  - CONVULSION [None]
  - DRUG INTERACTION [None]
  - DYSARTHRIA [None]
  - SYNCOPE [None]
